FAERS Safety Report 16995745 (Version 4)
Quarter: 2019Q4

REPORT INFORMATION
  Report Type: Spontaneous
  Country: US (occurrence: US)
  Receive Date: 20191105
  Receipt Date: 20191206
  Transmission Date: 20200122
  Serious: No
  Sender: FDA-Public Use
  Company Number: US-PFIZER INC-2019475138

PATIENT
  Age: 44 Year
  Sex: Male

DRUGS (1)
  1. XALKORI [Suspect]
     Active Substance: CRIZOTINIB
     Indication: LUNG CARCINOMA CELL TYPE UNSPECIFIED STAGE I
     Dosage: 250 MG, 2X/DAY
     Route: 048
     Dates: start: 201910

REACTIONS (8)
  - Fatigue [Unknown]
  - Vision blurred [Unknown]
  - Cough [Recovering/Resolving]
  - Musculoskeletal chest pain [Unknown]
  - Rhinorrhoea [Unknown]
  - Lung disorder [Unknown]
  - Constipation [Unknown]
  - Malaise [Unknown]
